FAERS Safety Report 12517423 (Version 2)
Quarter: 2016Q3

REPORT INFORMATION
  Report Type: Spontaneous
  Country: US (occurrence: US)
  Receive Date: 20160630
  Receipt Date: 20160714
  Transmission Date: 20161109
  Serious: No
  Sender: FDA-Public Use
  Company Number: US-BAYER-2016-127241

PATIENT
  Age: 73 Year
  Sex: Female
  Weight: 56.69 kg

DRUGS (1)
  1. CLARITIN REDITABS [Suspect]
     Active Substance: LORATADINE
     Dosage: UNK
     Dates: start: 20160627

REACTIONS (3)
  - Off label use [None]
  - Balance disorder [None]
  - Product use issue [None]

NARRATIVE: CASE EVENT DATE: 20160627
